FAERS Safety Report 7129589-9 (Version None)
Quarter: 2010Q4

REPORT INFORMATION
  Report Type: 
  Country: None (occurrence: None)
  Receive Date: 20101130
  Receipt Date: 20101118
  Transmission Date: 20110411
  Serious: Yes (Other)
  Sender: FDA-Public Use
  Company Number: PHHY2010US74650

PATIENT
  Sex: Female
  Weight: 70.6 kg

DRUGS (4)
  1. EXJADE [Suspect]
     Indication: SICKLE CELL ANAEMIA
     Dosage: 500 MG, UNK
     Route: 048
     Dates: start: 20100901
  2. FOLIC ACID [Concomitant]
  3. PERCOCET [Concomitant]
     Dosage: UNK
  4. HYDROXYUREA [Concomitant]
     Dosage: UNK

REACTIONS (3)
  - ABDOMINAL PAIN UPPER [None]
  - DIARRHOEA [None]
  - HEADACHE [None]
